FAERS Safety Report 7553772-1 (Version None)
Quarter: 2011Q2

REPORT INFORMATION
  Report Type: 
  Country: None (occurrence: None)
  Receive Date: 20110617
  Receipt Date: 20110602
  Transmission Date: 20111010
  Serious: Yes (Hospitalization)
  Sender: FDA-Public Use
  Company Number: US-JNJFOC-20110500307

PATIENT
  Sex: Male
  Weight: 90.95 kg

DRUGS (1)
  1. REMICADE [Suspect]
     Indication: PSORIATIC ARTHROPATHY
     Route: 042
     Dates: start: 20110325

REACTIONS (4)
  - CERVICOBRACHIAL SYNDROME [None]
  - SUICIDAL IDEATION [None]
  - PAIN IN EXTREMITY [None]
  - HYPOMANIA [None]
